FAERS Safety Report 6359304-8 (Version None)
Quarter: 2009Q3

REPORT INFORMATION
  Report Type: 
  Country: None (occurrence: None)
  Receive Date: 20090917
  Receipt Date: 20090914
  Transmission Date: 20100115
  Serious: Yes (Death)
  Sender: FDA-Public Use
  Company Number: CA-JNJFOC-20090902942

PATIENT

DRUGS (2)
  1. REMICADE [Suspect]
     Route: 042
     Dates: start: 20040101, end: 20080701
  2. REMICADE [Suspect]
     Indication: CROHN'S DISEASE
     Route: 042
     Dates: start: 20040101, end: 20080701

REACTIONS (2)
  - ARTHRALGIA [None]
  - DEATH [None]
